FAERS Safety Report 20946059 (Version 14)
Quarter: 2024Q4

REPORT INFORMATION
  Report Type: Report from Study
  Country: CO (occurrence: CO)
  Receive Date: 20220610
  Receipt Date: 20241003
  Transmission Date: 20250115
  Serious: Yes (Hospitalization, Other)
  Sender: TAKEDA
  Company Number: CO-TAKEDA-2021TUS068618

PATIENT
  Age: 4 Year
  Sex: Male
  Weight: 23 kg

DRUGS (5)
  1. HUMAN IMMUNOGLOBULIN G\HYALURONIDASE RECOMBINANT HUMAN [Suspect]
     Active Substance: HUMAN IMMUNOGLOBULIN G\HYALURONIDASE (HUMAN RECOMBINANT)
     Indication: Primary immunodeficiency syndrome
     Dosage: 3.2 GRAM, 2/MONTH
     Route: 058
     Dates: start: 20211026
  2. HUMAN IMMUNOGLOBULIN G\HYALURONIDASE RECOMBINANT HUMAN [Suspect]
     Active Substance: HUMAN IMMUNOGLOBULIN G\HYALURONIDASE (HUMAN RECOMBINANT)
     Dosage: 1.6 GRAM, 2/MONTH
     Route: 058
  3. HUMAN IMMUNOGLOBULIN G\HYALURONIDASE RECOMBINANT HUMAN [Suspect]
     Active Substance: HUMAN IMMUNOGLOBULIN G\HYALURONIDASE (HUMAN RECOMBINANT)
     Dosage: 3.2 GRAM, MONTHLY
     Route: 058
  4. HUMAN IMMUNOGLOBULIN G\HYALURONIDASE RECOMBINANT HUMAN [Suspect]
     Active Substance: HUMAN IMMUNOGLOBULIN G\HYALURONIDASE (HUMAN RECOMBINANT)
     Dosage: 4.2 GRAM, MONTHLY
     Route: 058
  5. HUMAN IMMUNOGLOBULIN G\HYALURONIDASE RECOMBINANT HUMAN [Suspect]
     Active Substance: HUMAN IMMUNOGLOBULIN G\HYALURONIDASE (HUMAN RECOMBINANT)
     Dosage: 5 GRAM, MONTHLY
     Route: 058

REACTIONS (18)
  - Vomiting [Recovering/Resolving]
  - Pulmonary oedema [Unknown]
  - Pyrexia [Unknown]
  - Puncture site pain [Recovering/Resolving]
  - Product dose omission issue [Unknown]
  - Nausea [Recovering/Resolving]
  - Gastrointestinal disorder [Recovered/Resolved]
  - Treatment noncompliance [Unknown]
  - Gastrointestinal bacterial infection [Unknown]
  - Weight increased [Unknown]
  - Body temperature increased [Unknown]
  - Discomfort [Unknown]
  - Incorrect dose administered [Unknown]
  - Product availability issue [Unknown]
  - Product prescribing error [Unknown]
  - Irritability [Unknown]
  - Anxiety [Unknown]
  - Malaise [Unknown]

NARRATIVE: CASE EVENT DATE: 20211030
